FAERS Safety Report 4674620-3 (Version None)
Quarter: 2005Q2

REPORT INFORMATION
  Report Type: 
  Country: None (occurrence: None)
  Receive Date: 20050523
  Receipt Date: 20050504
  Transmission Date: 20051028
  Serious: Yes (Hospitalization)
  Sender: FDA-Public Use
  Company Number: 2005-128008-NL

PATIENT
  Age: 67 Year
  Sex: Female
  Weight: 60 kg

DRUGS (7)
  1. TICE BCG [Suspect]
     Indication: BLADDER CANCER
     Dosage: CFU INTRAVESICAL
     Route: 043
     Dates: start: 20000101
  2. TICE BCG [Suspect]
     Indication: BLADDER CANCER
     Dosage: CFU INTRAVESICAL, APPROXIMATELY 10 INSTILLATIONS
     Route: 043
     Dates: start: 20030601, end: 20050101
  3. COMBIVENT [Concomitant]
  4. TENORMIN [Concomitant]
  5. NORVASC HYDROCHLORTHIAZIDE [Concomitant]
  6. POTASSIUM CHLORIDE [Concomitant]
  7. ASPIRIN [Concomitant]

REACTIONS (2)
  - BENIGN LUNG NEOPLASM [None]
  - BLADDER CANCER RECURRENT [None]
